FAERS Safety Report 7522432-5 (Version None)
Quarter: 2011Q2

REPORT INFORMATION
  Report Type: 
  Country: None (occurrence: None)
  Receive Date: 20110603
  Receipt Date: 20110524
  Transmission Date: 20111010
  Serious: Yes (Hospitalization)
  Sender: FDA-Public Use
  Company Number: JP-ROCHE-768838

PATIENT
  Sex: Female
  Weight: 46 kg

DRUGS (17)
  1. TOCILIZUMAB [Suspect]
     Route: 042
     Dates: start: 20101115
  2. LOXONIN [Concomitant]
     Dosage: BEGINING OF DOSAGE DAY: TRIAL PRE INNITIATION
     Route: 048
  3. TOCILIZUMAB [Suspect]
     Route: 042
     Dates: start: 20101015
  4. ONEALFA [Concomitant]
     Dosage: BEGINING OF DOSAGE DAY: TRIAL PRE INNITIATION
     Route: 048
  5. TOCILIZUMAB [Suspect]
     Route: 042
     Dates: start: 20110124
  6. OCRELIZUMAB [Suspect]
     Indication: RHEUMATOID ARTHRITIS
     Route: 042
     Dates: start: 20091007, end: 20091007
  7. METHOTREXATE [Suspect]
     Indication: RHEUMATOID ARTHRITIS
     Dosage: BEGINNING OF DOSAGE DAY: TRIAL PREINITIATION
     Route: 048
  8. SELBEX [Concomitant]
     Dosage: BEGINING OF DOSAGE DAY: TRIAL PRE INNITIATION
     Route: 048
  9. TOCILIZUMAB [Suspect]
     Route: 042
     Dates: start: 20100806
  10. TOCILIZUMAB [Suspect]
     Route: 042
     Dates: start: 20100910
  11. BENET [Concomitant]
     Dosage: BEGINING OF DOSAGE DAY: TRIAL PRE INNITIATION
     Route: 048
  12. TOCILIZUMAB [Suspect]
     Route: 042
     Dates: start: 20100614
  13. TOCILIZUMAB [Suspect]
     Route: 042
     Dates: start: 20101222
  14. MEDROL [Concomitant]
     Dosage: BEGINING OF DOSAGE DAY: TRIAL PRE INNITIATION
     Route: 048
  15. FOLIC ACID [Concomitant]
     Dosage: BEGINING OF DOSAGE DAY: TRIAL PRE INNITIATION
     Route: 048
  16. TOCILIZUMAB [Suspect]
     Indication: RHEUMATOID ARTHRITIS
     Route: 042
     Dates: start: 20100517
  17. TOCILIZUMAB [Suspect]
     Route: 042
     Dates: start: 20100712

REACTIONS (1)
  - MALIGNANT MELANOMA [None]
